FAERS Safety Report 20753929 (Version 1)
Quarter: 2022Q2

REPORT INFORMATION
  Report Type: Spontaneous
  Country: US (occurrence: None)
  Receive Date: 20220426
  Receipt Date: 20220426
  Transmission Date: 20220721
  Serious: No
  Sender: FDA-Public Use
  Company Number: US-ROCHE-2976827

PATIENT
  Sex: Female

DRUGS (11)
  1. ESBRIET [Suspect]
     Active Substance: PIRFENIDONE
     Indication: Product used for unknown indication
     Dosage: TAKE 3 CAPSULES BY MOUTH 3 TIMES A DAY
     Route: 048
  2. ALBUTEROL [Concomitant]
     Active Substance: ALBUTEROL
  3. AMLODIPINE [Concomitant]
     Active Substance: AMLODIPINE BESYLATE
  4. ASPIRIN [Concomitant]
     Active Substance: ASPIRIN
  5. BUPROPION [Concomitant]
     Active Substance: BUPROPION
  6. FLUTICASONE [Concomitant]
     Active Substance: FLUTICASONE
  7. FUROSEMIDE [Concomitant]
     Active Substance: FUROSEMIDE
  8. LEVOTHYROXINE [Concomitant]
     Active Substance: LEVOTHYROXINE
  9. OMEPRAZOLE [Concomitant]
     Active Substance: OMEPRAZOLE
  10. OXYBUTYNIN [Concomitant]
     Active Substance: OXYBUTYNIN
  11. POTASSIUM [Concomitant]
     Active Substance: POTASSIUM

REACTIONS (2)
  - Product dose omission in error [Unknown]
  - No adverse event [Unknown]
